FAERS Safety Report 8235432-7 (Version None)
Quarter: 2012Q1

REPORT INFORMATION
  Report Type: 
  Country: None (occurrence: None)
  Receive Date: 20120326
  Receipt Date: 20120110
  Transmission Date: 20120608
  Serious: Yes (Hospitalization)
  Sender: FDA-Public Use
  Company Number: DE-ABBOTT-11P-062-0872736-00

PATIENT
  Sex: Male

DRUGS (6)
  1. NOVUM [Concomitant]
     Indication: PRODUCT USED FOR UNKNOWN INDICATION
     Dosage: 20/12.5
  2. HUMIRA [Suspect]
     Indication: RHEUMATOID ARTHRITIS
     Route: 058
     Dates: start: 20091117
  3. METHOTREXATE [Concomitant]
     Indication: RHEUMATOID ARTHRITIS
  4. INSULIN HUMAN [Concomitant]
     Indication: DIABETES MELLITUS
     Route: 058
  5. INSUMAN BASAL [Concomitant]
     Indication: DIABETES MELLITUS
     Route: 058
  6. IBUPROFEN [Concomitant]
     Indication: RHEUMATOID ARTHRITIS

REACTIONS (1)
  - INTERVERTEBRAL DISC PROTRUSION [None]
